FAERS Safety Report 6709395-7 (Version None)
Quarter: 2010Q2

REPORT INFORMATION
  Report Type: 
  Country: None (occurrence: None)
  Receive Date: 20100430
  Receipt Date: 20100416
  Transmission Date: 20101027
  Serious: Yes (Other)
  Sender: FDA-Public Use
  Company Number: 2010048170

PATIENT
  Sex: Male

DRUGS (8)
  1. FRAGMIN [Suspect]
     Indication: THROMBOSIS PROPHYLAXIS
     Dates: start: 20100301, end: 20100411
  2. WARFARIN SODIUM [Concomitant]
  3. LANSOPRAZOLE [Concomitant]
  4. ENALAPRIL MALEATE [Concomitant]
  5. FELODIPINE [Concomitant]
  6. VESICARE [Concomitant]
  7. SIMVASTATIN [Concomitant]
  8. ALVEDON FORTE (PARACETAMOL) [Concomitant]

REACTIONS (2)
  - BLOOD GLUCOSE INCREASED [None]
  - GLYCOSYLATED HAEMOGLOBIN INCREASED [None]
